FAERS Safety Report 11860784 (Version 1)
Quarter: 2015Q4

REPORT INFORMATION
  Report Type: Other
  Country: CA (occurrence: CA)
  Receive Date: 20151222
  Receipt Date: 20151222
  Transmission Date: 20160305
  Serious: Yes (Life-Threatening, Disabling, Other)
  Sender: FDA-Public Use
  Company Number: CA-APOTEX-2015AP015381

PATIENT

DRUGS (2)
  1. APO-LORAZEPAM [Suspect]
     Active Substance: LORAZEPAM
     Indication: PRODUCT USED FOR UNKNOWN INDICATION
     Dosage: UNK
     Route: 065
  2. PAXIL [Suspect]
     Active Substance: PAROXETINE HYDROCHLORIDE
     Indication: PRODUCT USED FOR UNKNOWN INDICATION
     Dosage: 2600 MG, UNK
     Route: 065

REACTIONS (8)
  - Speech disorder [Unknown]
  - Seizure [Unknown]
  - Amnesia [Unknown]
  - Overdose [Unknown]
  - Motor dysfunction [Unknown]
  - Coma [Unknown]
  - Ageusia [Unknown]
  - Suicide attempt [Unknown]
